FAERS Safety Report 8495800-5 (Version None)
Quarter: 2012Q2

REPORT INFORMATION
  Report Type: 
  Country: None (occurrence: None)
  Receive Date: 20120629
  Receipt Date: 20120625
  Transmission Date: 20120825
  Serious: Yes (Life-Threatening, Other)
  Sender: FDA-Public Use
  Company Number: DEP_00633_2012

PATIENT
  Sex: Female

DRUGS (3)
  1. GRALISE [Suspect]
     Indication: OFF LABEL USE
     Dosage: (1800 MG QD, SAMPLE TITRATION PACK ORAL)
     Route: 048
     Dates: start: 20120409, end: 20120410
  2. GRALISE [Suspect]
     Indication: NEURALGIA
     Dosage: (1800 MG QD, SAMPLE TITRATION PACK ORAL)
     Route: 048
     Dates: start: 20120409, end: 20120410
  3. TRAMADOL HCL [Concomitant]

REACTIONS (1)
  - ANAPHYLACTIC REACTION [None]
